FAERS Safety Report 15617128 (Version 3)
Quarter: 2019Q3

REPORT INFORMATION
  Report Type: Spontaneous
  Country: BR (occurrence: BR)
  Receive Date: 20181114
  Receipt Date: 20190913
  Transmission Date: 20191004
  Serious: Yes (Other)
  Sender: FDA-Public Use
  Company Number: BR-PFIZER INC-2018376369

PATIENT
  Age: 81 Year
  Sex: Female

DRUGS (3)
  1. LORAX (LORAZEPAM) [Suspect]
     Active Substance: LORAZEPAM
     Indication: DEPRESSION
     Dosage: 2 MG, DAILY
     Dates: start: 1998
  2. LORAX (LORAZEPAM) [Suspect]
     Active Substance: LORAZEPAM
     Indication: INSOMNIA
  3. LORAX (LORAZEPAM) [Suspect]
     Active Substance: LORAZEPAM
     Indication: NERVOUSNESS
     Dosage: 2 MG, DAILY (2 TABLETS OF LORAZEPAM 1 MG/DAY)
     Dates: end: 2019

REACTIONS (1)
  - Cataract [Unknown]
